FAERS Safety Report 7753035-5 (Version None)
Quarter: 2011Q3

REPORT INFORMATION
  Report Type: 
  Country: None (occurrence: None)
  Receive Date: 20110915
  Receipt Date: 20110905
  Transmission Date: 20111222
  Serious: Yes (Death, Hospitalization)
  Sender: FDA-Public Use
  Company Number: FR-CELGENEUS-056-50794-11061481

PATIENT
  Age: 80 Year
  Sex: Male

DRUGS (3)
  1. VIDAZA [Suspect]
  2. VIDAZA [Suspect]
     Dosage: 75 MILLIGRAM/SQ. METER
     Route: 058
     Dates: start: 20100104, end: 20100601
  3. HYDROXYUREA [Concomitant]
     Indication: ACUTE MYELOID LEUKAEMIA
     Dates: start: 20091223, end: 20100115

REACTIONS (2)
  - HEPATITIS E [None]
  - ACUTE MYELOID LEUKAEMIA [None]
